FAERS Safety Report 7185170 (Version 2)
Quarter: 2014Q2

REPORT INFORMATION
  Report Type: Spontaneous
  Country: None (occurrence: None)
  Receive Date: 20091105
  Receipt Date: 20140415
  Transmission Date: 20141212
  Serious: Yes (Hospitalization, Other)
  Sender: FDA-Public Use
  Company Number: AUR-APL-2009-01024

PATIENT
  Age: 67 Year
  Sex: Female

DRUGS (2)
  1. CLINDAMYCIN [Suspect]
     Indication: TONSILLITIS
     Dosage: 600MG, TID, IM
     Route: 030
  2. ACENOCOUMAROL [Suspect]
     Indication: ATRIAL FIBRILLATION

REACTIONS (8)
  - Spontaneous haematoma [None]
  - Injection site haematoma [None]
  - Ecchymosis [None]
  - Blood glucose increased [None]
  - Anaemia [None]
  - Leukocytosis [None]
  - International normalised ratio increased [None]
  - Activated partial thromboplastin time prolonged [None]
